FAERS Safety Report 19653557 (Version 2)
Quarter: 2021Q3

REPORT INFORMATION
  Report Type: Report from Study
  Country: None (occurrence: BR)
  Receive Date: 20210804
  Receipt Date: 20210809
  Transmission Date: 20211014
  Serious: Yes (Death, Hospitalization, Other)
  Sender: FDA-Public Use
  Company Number: BR-ABBVIE-21K-020-4016743-00

PATIENT
  Age: 82 Year
  Sex: Female
  Weight: 105 kg

DRUGS (1)
  1. RINVOQ [Suspect]
     Active Substance: UPADACITINIB
     Indication: RHEUMATOID ARTHRITIS
     Dosage: UNSPECIFIED DOSE
     Route: 048

REACTIONS (8)
  - Osteotomy [Fatal]
  - Pulmonary oedema [Unknown]
  - Pulmonary embolism [Fatal]
  - Obesity [Fatal]
  - Back pain [Recovered/Resolved]
  - Respiratory tract infection [Fatal]
  - Respiratory disorder [Fatal]
  - Immunosuppression [Fatal]

NARRATIVE: CASE EVENT DATE: 202107
